FAERS Safety Report 15429130 (Version 1)
Quarter: 2018Q3

REPORT INFORMATION
  Report Type: Spontaneous
  Country: US (occurrence: US)
  Receive Date: 20180926
  Receipt Date: 20180926
  Transmission Date: 20181010
  Serious: No
  Sender: FDA-Public Use
  Company Number: US-PFIZER INC-2018380644

PATIENT
  Age: 56 Year
  Sex: Male
  Weight: 39.2 kg

DRUGS (2)
  1. DILAUDID [Suspect]
     Active Substance: HYDROMORPHONE HYDROCHLORIDE
     Indication: PAIN
     Dosage: UNK
  2. MORPHINE SULFATE. [Suspect]
     Active Substance: MORPHINE SULFATE
     Indication: PAIN
     Dosage: UNK

REACTIONS (3)
  - Poor quality drug administered [Unknown]
  - Liquid product physical issue [Unknown]
  - Chest pain [Recovering/Resolving]
